FAERS Safety Report 21125402 (Version 1)
Quarter: 2022Q3

REPORT INFORMATION
  Report Type: Spontaneous
  Country: IN (occurrence: IN)
  Receive Date: 20220725
  Receipt Date: 20220725
  Transmission Date: 20221027
  Serious: Yes (Death)
  Sender: FDA-Public Use
  Company Number: IN-PFIZER INC-202101023751

PATIENT
  Age: 43 Year
  Sex: Female

DRUGS (1)
  1. PALBOCICLIB [Suspect]
     Active Substance: PALBOCICLIB
     Dosage: 125 MG, 1X/DAY (OD)
     Route: 048
     Dates: start: 20210708, end: 20220711

REACTIONS (2)
  - Death [Fatal]
  - Product use in unapproved indication [Unknown]
